FAERS Safety Report 9276036 (Version 1)
Quarter: 2013Q2

REPORT INFORMATION
  Report Type: Spontaneous
  Country: US (occurrence: None)
  Receive Date: 20130502
  Receipt Date: 20130502
  Transmission Date: 20140414
  Serious: No
  Sender: FDA-Public Use
  Company Number: None

PATIENT
  Age: 62 Year
  Sex: Female
  Weight: 102.06 kg

DRUGS (1)
  1. AMBIEN [Suspect]

REACTIONS (2)
  - Drug ineffective [None]
  - Poor quality sleep [None]
